FAERS Safety Report 10151462 (Version 1)
Quarter: 2014Q2

REPORT INFORMATION
  Report Type: Spontaneous
  Country: US (occurrence: US)
  Receive Date: 20140504
  Receipt Date: 20140504
  Transmission Date: 20141212
  Serious: Yes (Other)
  Sender: FDA-Public Use
  Company Number: US-BRISTOL-MYERS SQUIBB COMPANY-20674206

PATIENT
  Age: 70 Year
  Sex: Female
  Weight: 65.76 kg

DRUGS (2)
  1. COUMADIN [Suspect]
     Indication: ATRIAL FIBRILLATION
     Dosage: 1 DF=5MG FOR 4 DAYS,7.5 MG FOR 3 DAYS .
  2. WARFARIN [Suspect]

REACTIONS (3)
  - Head injury [Unknown]
  - Cerebral haemorrhage [Unknown]
  - International normalised ratio fluctuation [Unknown]
